FAERS Safety Report 19884215 (Version 1)
Quarter: 2021Q3

REPORT INFORMATION
  Report Type: Spontaneous
  Country: FR (occurrence: FR)
  Receive Date: 20210927
  Receipt Date: 20210927
  Transmission Date: 20211014
  Serious: No
  Sender: FDA-Public Use
  Company Number: FR-UCBSA-2021045404

PATIENT
  Age: 89 Year
  Sex: Female
  Weight: 49.4 kg

DRUGS (6)
  1. KEPPRA [Suspect]
     Active Substance: LEVETIRACETAM
     Indication: EPILEPSY
     Dosage: 1 GRAM DAILY
     Route: 048
     Dates: start: 20210811, end: 20210813
  2. RIVOTRIL [Suspect]
     Active Substance: CLONAZEPAM
     Indication: EPILEPSY
     Route: 042
     Dates: start: 20210811, end: 20210811
  3. FLAGYL [Suspect]
     Active Substance: METRONIDAZOLE\METRONIDAZOLE HYDROCHLORIDE
     Indication: LUNG DISORDER
     Dosage: 1 GRAM, ONCE DAILY (QD)
     Route: 042
     Dates: start: 20210811, end: 20210815
  4. CEFTRIAXONE. [Concomitant]
     Active Substance: CEFTRIAXONE
     Indication: LUNG DISORDER
     Route: 042
     Dates: start: 20210811, end: 20210817
  5. CALCIPARINE [Suspect]
     Active Substance: HEPARIN CALCIUM
     Indication: THROMBOSIS PROPHYLAXIS
     Dosage: 6250 3 TIMES PER DAY
     Route: 058
     Dates: start: 20210811, end: 20210815
  6. KEPPRA [Suspect]
     Active Substance: LEVETIRACETAM
     Indication: EPILEPSY
     Dosage: 1 GRAM, ONE TIME DOSE
     Route: 042
     Dates: start: 20210811, end: 20210811

REACTIONS (1)
  - Neutropenia [Recovering/Resolving]

NARRATIVE: CASE EVENT DATE: 20210813
